FAERS Safety Report 8073449-6 (Version None)
Quarter: 2012Q1

REPORT INFORMATION
  Report Type: 
  Country: None (occurrence: None)
  Receive Date: 20120126
  Receipt Date: 20120126
  Transmission Date: 20120608
  Serious: Yes (Life-Threatening)
  Sender: FDA-Public Use
  Company Number: None

PATIENT
  Age: 61 Year
  Sex: Female
  Weight: 89.811 kg

DRUGS (2)
  1. CYMBALTA [Suspect]
     Indication: PAIN
     Route: 048
     Dates: start: 20110804, end: 20111215
  2. CYMBALTA [Suspect]
     Indication: MULTIPLE SCLEROSIS
     Route: 048
     Dates: start: 20110804, end: 20111215

REACTIONS (13)
  - RASH [None]
  - OROPHARYNGEAL PAIN [None]
  - FEAR [None]
  - FEELING ABNORMAL [None]
  - DRY MOUTH [None]
  - TINNITUS [None]
  - SELF-INJURIOUS IDEATION [None]
  - NIGHTMARE [None]
  - DIZZINESS [None]
  - VIOLENCE-RELATED SYMPTOM [None]
  - EMOTIONAL DISORDER [None]
  - STOMATITIS [None]
  - INSOMNIA [None]
